FAERS Safety Report 24449070 (Version 1)
Quarter: 2024Q4

REPORT INFORMATION
  Report Type: Spontaneous
  Country: US (occurrence: US)
  Receive Date: 20241017
  Receipt Date: 20241017
  Transmission Date: 20250115
  Serious: Yes (Hospitalization, Other)
  Sender: NOVITIUM PHARMA
  Company Number: US-NOVITIUMPHARMA-2024USNVP02215

PATIENT
  Age: 37 Year
  Sex: Female

DRUGS (12)
  1. PREDNISONE [Suspect]
     Active Substance: PREDNISONE
     Indication: Lung transplant rejection
  2. SULFAMETHOXAZOLE\TRIMETHOPRIM [Suspect]
     Active Substance: SULFAMETHOXAZOLE\TRIMETHOPRIM
     Indication: Pneumonia pseudomonal
  3. CYCLOSPORINE [Concomitant]
     Active Substance: CYCLOSPORINE
  4. MYCOPHENOLIC ACID [Concomitant]
     Active Substance: MYCOPHENOLIC ACID
  5. OSELTAMIVIR [Concomitant]
     Active Substance: OSELTAMIVIR
  6. CEFIDEROCOL [Concomitant]
     Active Substance: CEFIDEROCOL
  7. DOXYCYCLINE [Concomitant]
     Active Substance: DOXYCYCLINE
  8. POSACONAZOLE [Concomitant]
     Active Substance: POSACONAZOLE
  9. TOBRAMYCIN [Concomitant]
     Active Substance: TOBRAMYCIN\TOBRAMYCIN SULFATE
  10. Baloxavir-marboxil [Concomitant]
  11. VALGANCICLOVIR [Concomitant]
     Active Substance: VALGANCICLOVIR
     Indication: Antiviral prophylaxis
  12. METHYLPREDNISOLONE [Concomitant]
     Active Substance: METHYLPREDNISOLONE
     Dosage: PULSE-DOSE

REACTIONS (3)
  - Complications of transplanted lung [Unknown]
  - Bronchiolitis obliterans syndrome [Unknown]
  - Drug ineffective [Unknown]
